FAERS Safety Report 13107260 (Version 1)
Quarter: 2017Q1

REPORT INFORMATION
  Report Type: Spontaneous
  Country: US (occurrence: US)
  Receive Date: 20170112
  Receipt Date: 20170112
  Transmission Date: 20170428
  Serious: No
  Sender: FDA-Public Use
  Company Number: US-AUROBINDO-AUR-APU-2016-01236

PATIENT

DRUGS (1)
  1. OXYCODONE 5MG [Suspect]
     Active Substance: OXYCODONE
     Indication: PAIN
     Dosage: 5 MG, UNK
     Route: 065
     Dates: start: 20160108, end: 20160122

REACTIONS (5)
  - Headache [Unknown]
  - Vision blurred [Unknown]
  - Eye irritation [Unknown]
  - Neck pain [Unknown]
  - Back pain [Unknown]
